FAERS Safety Report 7478581-3 (Version None)
Quarter: 2011Q2

REPORT INFORMATION
  Report Type: 
  Country: None (occurrence: None)
  Receive Date: 20110513
  Receipt Date: 20110511
  Transmission Date: 20111010
  Serious: Yes (Death, Life-Threatening, Hospitalization)
  Sender: FDA-Public Use
  Company Number: BH-B.I. PHARMACEUTICALS,INC./RIDGEFIELD-2011-CS-00334AE

PATIENT

DRUGS (1)
  1. PRADAXA [Suspect]
     Indication: CEREBROVASCULAR ACCIDENT PROPHYLAXIS
     Dosage: 110 MG

REACTIONS (1)
  - GASTROINTESTINAL HAEMORRHAGE [None]
